FAERS Safety Report 10074696 (Version 4)
Quarter: 2015Q2

REPORT INFORMATION
  Report Type: Spontaneous
  Country: US (occurrence: US)
  Receive Date: 20140414
  Receipt Date: 20150525
  Transmission Date: 20150821
  Serious: Yes (Other)
  Sender: FDA-Public Use
  Company Number: US-JNJFOC-20131111626

PATIENT
  Sex: Female

DRUGS (28)
  1. TOPAMAX [Suspect]
     Active Substance: TOPIRAMATE
     Indication: ANXIETY
     Route: 048
     Dates: start: 20020502, end: 20021010
  2. SULFAMETHOXAZOLE/TRIMETHOPRIM [Suspect]
     Active Substance: SULFAMETHOXAZOLE\TRIMETHOPRIM
     Indication: PRODUCT USED FOR UNKNOWN INDICATION
     Route: 065
  3. SPIRONOLACTONE. [Suspect]
     Active Substance: SPIRONOLACTONE
     Indication: PRODUCT USED FOR UNKNOWN INDICATION
     Route: 065
  4. PHENAZOPYRIDINE. [Suspect]
     Active Substance: PHENAZOPYRIDINE
     Indication: PRODUCT USED FOR UNKNOWN INDICATION
     Route: 048
  5. IRON [Concomitant]
     Active Substance: IRON
     Indication: PRODUCT USED FOR UNKNOWN INDICATION
     Route: 065
  6. TOPAMAX [Suspect]
     Active Substance: TOPIRAMATE
     Indication: MIGRAINE
     Route: 048
     Dates: start: 20020502, end: 20021010
  7. TOPAMAX [Suspect]
     Active Substance: TOPIRAMATE
     Indication: MIGRAINE
     Route: 048
     Dates: start: 20020104, end: 20020322
  8. TOPAMAX [Suspect]
     Active Substance: TOPIRAMATE
     Indication: DEPRESSION
     Route: 048
     Dates: start: 20020502, end: 20021010
  9. DOXEPIN [Suspect]
     Active Substance: DOXEPIN
     Indication: PRODUCT USED FOR UNKNOWN INDICATION
     Route: 048
  10. AMITRIPTYLINE HCL [Suspect]
     Active Substance: AMITRIPTYLINE
     Indication: PRODUCT USED FOR UNKNOWN INDICATION
     Route: 065
  11. IBUPROFEN. [Suspect]
     Active Substance: IBUPROFEN
     Indication: PRODUCT USED FOR UNKNOWN INDICATION
     Route: 065
  12. ZOLOFT [Suspect]
     Active Substance: SERTRALINE HYDROCHLORIDE
     Indication: DEPRESSION
     Route: 048
  13. ZITHROMAX [Suspect]
     Active Substance: AZITHROMYCIN DIHYDRATE
     Indication: PRODUCT USED FOR UNKNOWN INDICATION
     Route: 065
  14. ZYRTEC [Suspect]
     Active Substance: CETIRIZINE HYDROCHLORIDE
     Route: 048
  15. ERY-TAB [Suspect]
     Active Substance: ERYTHROMYCIN
     Indication: PRODUCT USED FOR UNKNOWN INDICATION
     Route: 048
  16. TOPAMAX [Suspect]
     Active Substance: TOPIRAMATE
     Indication: ANXIETY
     Route: 048
     Dates: start: 20020104, end: 20020322
  17. HYDROXYZINE PAMOATE. [Suspect]
     Active Substance: HYDROXYZINE PAMOATE
     Indication: PRODUCT USED FOR UNKNOWN INDICATION
     Route: 048
  18. MAXALT [Suspect]
     Active Substance: RIZATRIPTAN BENZOATE
     Indication: MIGRAINE
     Route: 048
  19. TOPAMAX [Suspect]
     Active Substance: TOPIRAMATE
     Indication: HEADACHE
     Route: 048
     Dates: start: 20020104, end: 20020322
  20. TOPAMAX [Suspect]
     Active Substance: TOPIRAMATE
     Indication: DEPRESSION
     Route: 048
     Dates: start: 20020104, end: 20020322
  21. MECLIZINE [Suspect]
     Active Substance: MECLIZINE\MECLIZINE HYDROCHLORIDE
     Indication: PRODUCT USED FOR UNKNOWN INDICATION
     Route: 048
  22. ZYRTEC [Suspect]
     Active Substance: CETIRIZINE HYDROCHLORIDE
     Indication: PRODUCT USED FOR UNKNOWN INDICATION
     Route: 048
  23. PRENATAL VITAMINS [Concomitant]
     Active Substance: VITAMINS
     Indication: PRODUCT USED FOR UNKNOWN INDICATION
     Route: 065
  24. ZOLOFT [Suspect]
     Active Substance: SERTRALINE HYDROCHLORIDE
     Indication: ANXIETY
     Route: 048
  25. VITAMINS NOS [Suspect]
     Active Substance: VITAMINS
     Indication: PRODUCT USED FOR UNKNOWN INDICATION
     Route: 065
  26. AMOXICILLIN. [Suspect]
     Active Substance: AMOXICILLIN
     Indication: FURUNCLE
     Route: 065
  27. FERROUS SULFATE [Concomitant]
     Active Substance: FERROUS SULFATE\FERROUS SULFATE, DRIED
     Indication: PRODUCT USED FOR UNKNOWN INDICATION
     Route: 048
  28. TOPAMAX [Suspect]
     Active Substance: TOPIRAMATE
     Indication: HEADACHE
     Route: 048
     Dates: start: 20020502, end: 20021010

REACTIONS (5)
  - Exposure during pregnancy [Recovered/Resolved]
  - Twin pregnancy [Recovered/Resolved]
  - Pre-eclampsia [Recovered/Resolved]
  - Emotional disorder [Unknown]
  - Off label use [Unknown]
